FAERS Safety Report 4414055-1 (Version None)
Quarter: 2004Q3

REPORT INFORMATION
  Report Type: 
  Country: None (occurrence: None)
  Receive Date: 20040803
  Receipt Date: 20040518
  Transmission Date: 20050211
  Serious: Yes (Other)
  Sender: FDA-Public Use
  Company Number: 001#1#2004-00104

PATIENT
  Age: 78 Year
  Sex: Female

DRUGS (3)
  1. ATMADISC [Suspect]
     Dosage: 1PUFF TWICE PER DAY
     Route: 055
     Dates: start: 20030623
  2. ATMADISC MITE [Suspect]
     Route: 055
     Dates: end: 20040517
  3. OLMESARTAN MEDOXOMIL [Concomitant]
     Route: 065
     Dates: start: 20030919

REACTIONS (7)
  - CATARACT [None]
  - DRY MOUTH [None]
  - GLAUCOMA [None]
  - HOARSENESS [None]
  - ILL-DEFINED DISORDER [None]
  - PHARYNGEAL ERYTHEMA [None]
  - THROAT IRRITATION [None]
